FAERS Safety Report 11419834 (Version 1)
Quarter: 2015Q3

REPORT INFORMATION
  Report Type: Spontaneous
  Country: US (occurrence: US)
  Receive Date: 20150826
  Receipt Date: 20150826
  Transmission Date: 20151125
  Serious: No
  Sender: FDA-Public Use
  Company Number: US-GUERBET LLC-1041379

PATIENT
  Age: 42 Year
  Sex: Female

DRUGS (1)
  1. DOTAREM [Suspect]
     Active Substance: GADOTERATE MEGLUMINE
     Route: 042
     Dates: start: 20141121, end: 20141121

REACTIONS (1)
  - Vomiting [Recovered/Resolved]

NARRATIVE: CASE EVENT DATE: 20141121
